FAERS Safety Report 4383150-8 (Version None)
Quarter: 2004Q2

REPORT INFORMATION
  Report Type: 
  Country: None (occurrence: None)
  Receive Date: 20040623
  Receipt Date: 20040518
  Transmission Date: 20050107
  Serious: Yes (Disabling, Congenital Anomaly, Other)
  Sender: FDA-Public Use
  Company Number: PHEH2004US05484

PATIENT
  Sex: Female
  Weight: 3 kg

DRUGS (4)
  1. TEGRETOL [Suspect]
     Indication: EPILEPSY
     Route: 064
  2. PRENATAL VITAMINS [Concomitant]
     Route: 064
  3. TERBUTALINE [Concomitant]
     Route: 064
  4. VITAMIN K TAB [Concomitant]
     Route: 064

REACTIONS (4)
  - CONGENITAL HAND MALFORMATION [None]
  - DRUG EXPOSURE DURING PREGNANCY [None]
  - LIMB MALFORMATION [None]
  - UMBILICAL CORD VASCULAR DISORDER [None]
